FAERS Safety Report 18238024 (Version 1)
Quarter: 2020Q3

REPORT INFORMATION
  Report Type: Spontaneous
  Country: US (occurrence: US)
  Receive Date: 20200907
  Receipt Date: 20200907
  Transmission Date: 20201103
  Serious: No
  Sender: FDA-Public Use
  Company Number: US-SA-2020SA241700

PATIENT

DRUGS (1)
  1. DUPIXENT [Suspect]
     Active Substance: DUPILUMAB
     Indication: DERMATITIS ATOPIC
     Dosage: 300 MG, QOW
     Route: 058

REACTIONS (7)
  - Rash [Unknown]
  - Urticaria [Unknown]
  - Skin irritation [Unknown]
  - Abdominal discomfort [Unknown]
  - Weight increased [Unknown]
  - Vision blurred [Unknown]
  - Therapeutic response shortened [Unknown]
